FAERS Safety Report 18945225 (Version 1)
Quarter: 2021Q1

REPORT INFORMATION
  Report Type: Report from Study
  Country: US (occurrence: US)
  Receive Date: 20210226
  Receipt Date: 20210226
  Transmission Date: 20210420
  Serious: Yes (Other)
  Sender: FDA-Public Use
  Company Number: US-MYLANLABS-2021M1010417

PATIENT
  Sex: Female
  Weight: 56.5 kg

DRUGS (2)
  1. AMNESTEEM [Suspect]
     Active Substance: ISOTRETINOIN
     Indication: PRODUCT USED FOR UNKNOWN INDICATION
     Dosage: 40MG IN THE MORNING AND 20MG AT NIGHT EACH DAY
     Route: 048
     Dates: end: 20210215
  2. AMNESTEEM [Suspect]
     Active Substance: ISOTRETINOIN
     Indication: PRODUCT USED FOR UNKNOWN INDICATION
     Dosage: 40MG IN THE MORNING AND 20MG AT NIGHT EACH DAY
     Route: 048
     Dates: end: 20210215

REACTIONS (4)
  - Arthralgia [Unknown]
  - Mental impairment [Unknown]
  - Condition aggravated [Unknown]
  - Myalgia [Unknown]
